FAERS Safety Report 5518992-6 (Version None)
Quarter: 2007Q4

REPORT INFORMATION
  Report Type: 
  Country: None (occurrence: None)
  Receive Date: 20071116
  Receipt Date: 20071107
  Transmission Date: 20080405
  Serious: Yes (Hospitalization)
  Sender: FDA-Public Use
  Company Number: PHBS2007JP15877

PATIENT
  Sex: Male

DRUGS (2)
  1. RITALIN [Suspect]
     Indication: DEPRESSION
  2. BASEN [Concomitant]
     Indication: DIABETES MELLITUS
     Dosage: 2.5 MG, UNK

REACTIONS (1)
  - HYPOGLYCAEMIA [None]
